FAERS Safety Report 4697008-8 (Version None)
Quarter: 2005Q2

REPORT INFORMATION
  Report Type: 
  Country: None (occurrence: None)
  Receive Date: 20050620
  Receipt Date: 20050323
  Transmission Date: 20051028
  Serious: No
  Sender: FDA-Public Use
  Company Number: US-YAMANOUCHI-YPA20050160

PATIENT
  Age: 51 Year
  Sex: Female
  Weight: 93.8946 kg

DRUGS (4)
  1. VESICARE [Suspect]
     Indication: CYSTITIS
     Dosage: 5 MG QD PO
     Route: 048
     Dates: start: 20050323, end: 20050323
  2. LEVOTHYROXINE SODIUM [Concomitant]
  3. ELMIRON [Concomitant]
  4. DITROPAN  /SCH/ [Concomitant]

REACTIONS (5)
  - IRRITABILITY [None]
  - MIGRAINE [None]
  - POLLAKIURIA [None]
  - PSYCHOMOTOR HYPERACTIVITY [None]
  - WEIGHT DECREASED [None]
